FAERS Safety Report 5260570-0 (Version None)
Quarter: 2007Q1

REPORT INFORMATION
  Report Type: 
  Country: None (occurrence: None)
  Receive Date: 20070309
  Receipt Date: 20061103
  Transmission Date: 20070707
  Serious: No
  Sender: FDA-Public Use
  Company Number: US-GLAXOSMITHKLINE-A0625981A

PATIENT
  Age: 40 Year
  Sex: Female

DRUGS (4)
  1. NICORETTE [Suspect]
  2. COMMIT [Suspect]
     Dates: start: 20061031
  3. SYNTHROID [Concomitant]
  4. CYTOMEL [Concomitant]

REACTIONS (2)
  - ENERGY INCREASED [None]
  - FEELING ABNORMAL [None]
